FAERS Safety Report 9376282 (Version 1)
Quarter: 2013Q3

REPORT INFORMATION
  Report Type: Spontaneous
  Country: US (occurrence: US)
  Receive Date: 20130701
  Receipt Date: 20130701
  Transmission Date: 20140515
  Serious: No
  Sender: FDA-Public Use
  Company Number: US-B.I. PHARMACEUTICALS,INC./RIDGEFIELD-2013-BI-18616BP

PATIENT
  Age: 23 Year
  Sex: Male
  Weight: 98 kg

DRUGS (3)
  1. COMBIVENT [Suspect]
     Indication: ASTHMA
     Dosage: STRENGTH: 20 MCG / 100 MCG; DAILY DOSE: 80MCG/400MCG
     Route: 055
     Dates: start: 20130401
  2. ADVAIR [Concomitant]
     Indication: ASTHMA
     Dosage: STRENGTH: 250/50; DAILY DOSE: 500/100
     Route: 055
  3. COMBIVENT MDI [Concomitant]
     Indication: ASTHMA
     Dosage: FORMULATION: (INHALATION AEROSOL) STRENGTH: 18MCG/103MCG; DAILY DOSE: 144MCG/1004MCG
     Route: 055
     Dates: start: 2003, end: 201304

REACTIONS (2)
  - Dyspnoea [Not Recovered/Not Resolved]
  - Drug effect decreased [Not Recovered/Not Resolved]
